FAERS Safety Report 4287482-3 (Version None)
Quarter: 2004Q1

REPORT INFORMATION
  Report Type: 
  Country: None (occurrence: None)
  Receive Date: 20040209
  Receipt Date: 20030707
  Transmission Date: 20041129
  Serious: No
  Sender: FDA-Public Use
  Company Number: US-GLAXOSMITHKLINE-A0415846A

PATIENT
  Age: 18 Year
  Sex: Female

DRUGS (2)
  1. PAXIL CR [Suspect]
     Indication: DEPRESSION
     Dosage: 25MG PER DAY
     Route: 048
     Dates: start: 20030601, end: 20030601
  2. GINKO BILOBA [Concomitant]

REACTIONS (2)
  - DISSOCIATION [None]
  - FEELING ABNORMAL [None]
